FAERS Safety Report 5390877-8 (Version None)
Quarter: 2007Q3

REPORT INFORMATION
  Report Type: 
  Country: None (occurrence: None)
  Receive Date: 20070716
  Receipt Date: 20070703
  Transmission Date: 20080115
  Serious: Yes (Life-Threatening, Hospitalization, Disabling, Other)
  Sender: FDA-Public Use
  Company Number: GXKR2007GB05567

PATIENT
  Age: 39 Year
  Sex: Female
  Weight: 70 kg

DRUGS (4)
  1. CITALOPRAM HYDROBROMIDE [Suspect]
     Indication: DEPRESSION
     Dosage: 1 DF, QD, ORAL
     Route: 048
  2. IMIGRANE (SUMATRIPTAN SUCCINATE) TABLET, 50 MG [Suspect]
     Indication: MIGRAINE
     Dosage: AS REQUIRED, ORAL
     Route: 048
     Dates: start: 20070202, end: 20070202
  3. IMODIUM (LOPERAMIDE HYDROCHLORIDE, SIMETICONE) [Concomitant]
  4. MICROGYNON (ETHINYLESTRADIOL, LEVONORGESTREL) [Concomitant]

REACTIONS (20)
  - ABASIA [None]
  - ABDOMINAL PAIN [None]
  - ANAPHYLACTIC SHOCK [None]
  - CHEST DISCOMFORT [None]
  - CHEST PAIN [None]
  - CIRCULATORY COLLAPSE [None]
  - DIARRHOEA [None]
  - DRUG INTERACTION [None]
  - DYSPNOEA [None]
  - GASTROENTERITIS [None]
  - HYPERHIDROSIS [None]
  - MALAISE [None]
  - MEDICATION ERROR [None]
  - PHARYNGEAL OEDEMA [None]
  - PHOTOPHOBIA [None]
  - PHOTOSENSITIVITY REACTION [None]
  - PYREXIA [None]
  - RASH [None]
  - THROAT TIGHTNESS [None]
  - VOMITING [None]
